APPROVED DRUG PRODUCT: IBUPROFEN
Active Ingredient: IBUPROFEN
Strength: 200MG
Dosage Form/Route: TABLET;ORAL
Application: A071735 | Product #001
Applicant: CONTRACT PHARMACAL CORP
Approved: Sep 10, 1987 | RLD: No | RS: No | Type: DISCN